FAERS Safety Report 12108988 (Version 4)
Quarter: 2019Q2

REPORT INFORMATION
  Report Type: Spontaneous
  Country: FR (occurrence: FR)
  Receive Date: 20160224
  Receipt Date: 20190628
  Transmission Date: 20190711
  Serious: Yes (Death, Hospitalization)
  Sender: FDA-Public Use
  Company Number: FR-ROCHE-1713538

PATIENT
  Age: 39 Year
  Sex: Female

DRUGS (14)
  1. RIVOTRIL [Suspect]
     Active Substance: CLONAZEPAM
     Dosage: 4 MG/DAY
     Route: 048
     Dates: start: 20160119
  2. PHENOBARBITAL. [Suspect]
     Active Substance: PHENOBARBITAL
     Dosage: THERE WAS LOAD CHARGE OF PHENOBARBITAL THEN THE DOSE WAS MAINTAINED.
     Route: 048
     Dates: start: 20160205
  3. AUGMENTIN [Concomitant]
     Active Substance: AMOXICILLIN\CLAVULANATE POTASSIUM
     Indication: PRODUCT USED FOR UNKNOWN INDICATION
     Dosage: UNK, FOR 8 DAYS
     Route: 065
     Dates: start: 201602
  4. LOXEN [NICARDIPINE HYDROCHLORIDE] [Concomitant]
     Active Substance: NICARDIPINE HYDROCHLORIDE
     Indication: BLOOD PRESSURE ABNORMAL
     Dosage: UNK
     Route: 065
     Dates: start: 2016
  5. PROPOFOL. [Suspect]
     Active Substance: PROPOFOL
     Indication: STATUS EPILEPTICUS
     Route: 042
     Dates: start: 20160117
  6. KEPPRA [Suspect]
     Active Substance: LEVETIRACETAM
     Route: 042
     Dates: start: 20160125
  7. PHENOBARBITAL. [Suspect]
     Active Substance: PHENOBARBITAL
     Dosage: FOR 24 HOURS.
     Route: 048
     Dates: start: 20160130
  8. RIVOTRIL [Suspect]
     Active Substance: CLONAZEPAM
     Indication: STATUS EPILEPTICUS
     Dosage: 2 MG/DAY
     Route: 048
     Dates: start: 20160118
  9. VIMPAT [Suspect]
     Active Substance: LACOSAMIDE
     Indication: STATUS EPILEPTICUS
     Dosage: ADMINISTERED VIA NASOGASTRIC PROBE.
     Route: 048
     Dates: start: 20160118, end: 20160130
  10. PHENOBARBITAL. [Suspect]
     Active Substance: PHENOBARBITAL
     Indication: STATUS EPILEPTICUS
     Route: 048
     Dates: start: 20160117, end: 20160119
  11. MAGNESIUM SULPHATE [MAGNESIUM SULFATE] [Concomitant]
     Indication: PRODUCT USED FOR UNKNOWN INDICATION
     Dosage: UNK
     Route: 065
  12. DILANTIN [Suspect]
     Active Substance: PHENYTOIN
     Indication: STATUS EPILEPTICUS
     Route: 042
     Dates: start: 20160117, end: 20160207
  13. KEPPRA [Suspect]
     Active Substance: LEVETIRACETAM
     Indication: STATUS EPILEPTICUS
     Route: 042
     Dates: start: 20160117, end: 20160119
  14. TRILEPTAL [Suspect]
     Active Substance: OXCARBAZEPINE
     Indication: STATUS EPILEPTICUS
     Dosage: ADMINISTERED VIA NASOGASTRIC PROBE AND DISCONTINUED DUE TO ONSET OF LIVER DAMAGE (UNAVAILABLE VALUES
     Route: 048
     Dates: start: 20160118, end: 20160204

REACTIONS (9)
  - Liver injury [Fatal]
  - Transaminases increased [Fatal]
  - Multiple organ dysfunction syndrome [Fatal]
  - Pyrexia [Fatal]
  - Blood alkaline phosphatase increased [Fatal]
  - Gamma-glutamyltransferase increased [Fatal]
  - Septic shock [Fatal]
  - Lung disorder [Fatal]
  - Agranulocytosis [Fatal]

NARRATIVE: CASE EVENT DATE: 201602
